FAERS Safety Report 8803053 (Version 1)
Quarter: 2012Q4

REPORT INFORMATION
  Report Type: 
  Country: US (occurrence: US)
  Receive Date: 20120924
  Receipt Date: 20120924
  Transmission Date: 20130627
  Serious: No
  Sender: FDA-Public Use
  Company Number: US-B.I. PHARMACEUTICALS,INC./RIDGEFIELD-2012-BP-22956BP

PATIENT
  Sex: Female
  Weight: 86 kg

DRUGS (4)
  1. ZANTAC (RANITIDINE HYDROCHLORIDE) [Suspect]
     Indication: DYSPEPSIA
     Dosage: 450 mg
     Route: 048
  2. BENEDRYL [Concomitant]
     Indication: HYPERSENSITIVITY
     Route: 048
  3. NORVASC [Concomitant]
     Indication: HYPERTENSION
     Dosage: 5 mg
     Route: 048
     Dates: start: 2006
  4. MULTIVITAMIN [Concomitant]
     Route: 048

REACTIONS (1)
  - Drug screen positive [Recovered/Resolved]
